FAERS Safety Report 19431931 (Version 1)
Quarter: 2021Q2

REPORT INFORMATION
  Report Type: Spontaneous
  Country: US (occurrence: US)
  Receive Date: 20210618
  Receipt Date: 20210618
  Transmission Date: 20210717
  Serious: Yes (Other)
  Sender: FDA-Public Use
  Company Number: US-NOVOPROD-820636

PATIENT
  Age: 70 Year
  Sex: Female

DRUGS (3)
  1. OZEMPIC [Suspect]
     Active Substance: SEMAGLUTIDE
     Indication: PRODUCT USED FOR UNKNOWN INDICATION
     Dosage: 0.5 MG, QW
     Route: 058
     Dates: start: 2020, end: 20210528
  2. METFORMIN [Concomitant]
     Active Substance: METFORMIN HYDROCHLORIDE
     Indication: PRODUCT USED FOR UNKNOWN INDICATION
     Dosage: 500 MG, BID
     Route: 065
  3. LEVEMIR [Suspect]
     Active Substance: INSULIN DETEMIR
     Indication: PRODUCT USED FOR UNKNOWN INDICATION
     Dosage: 28 IU, QD (AT BEDTIME)
     Route: 058
     Dates: start: 1988

REACTIONS (6)
  - Pollakiuria [Unknown]
  - Cataract [Unknown]
  - Memory impairment [Unknown]
  - Weight decreased [Unknown]
  - Glaucoma [Unknown]
  - Dehydration [Unknown]

NARRATIVE: CASE EVENT DATE: 20210507
